FAERS Safety Report 13870462 (Version 2)
Quarter: 2017Q3

REPORT INFORMATION
  Report Type: Report from Study
  Country: EG (occurrence: EG)
  Receive Date: 20170815
  Receipt Date: 20170831
  Transmission Date: 20171127
  Serious: Yes (Hospitalization)
  Sender: FDA-Public Use
  Company Number: EG-EMD SERONO-8175650

PATIENT
  Age: 36 Year
  Sex: Female

DRUGS (3)
  1. REBIF [Suspect]
     Active Substance: INTERFERON BETA-1A
     Indication: MULTIPLE SCLEROSIS
     Dates: start: 201702, end: 201705
  2. REBIF [Suspect]
     Active Substance: INTERFERON BETA-1A
     Dates: start: 201706
  3. REBIF [Suspect]
     Active Substance: INTERFERON BETA-1A
     Dates: start: 20170729, end: 201708

REACTIONS (8)
  - Vomiting [Recovered/Resolved]
  - Fatigue [Unknown]
  - Chills [Recovered/Resolved]
  - Pain in extremity [Unknown]
  - Limb discomfort [Unknown]
  - Oropharyngeal pain [Recovered/Resolved]
  - Product availability issue [Recovered/Resolved]
  - Pyrexia [Recovered/Resolved]

NARRATIVE: CASE EVENT DATE: 201705
